FAERS Safety Report 7479767-4 (Version None)
Quarter: 2011Q2

REPORT INFORMATION
  Report Type: 
  Country: None (occurrence: None)
  Receive Date: 20110513
  Receipt Date: 20110510
  Transmission Date: 20111010
  Serious: Yes (Death, Other)
  Sender: FDA-Public Use
  Company Number: FR-MERCK-1105FRA00056

PATIENT
  Age: 82 Year
  Sex: Male

DRUGS (11)
  1. GLICLAZIDE [Concomitant]
     Indication: TYPE 2 DIABETES MELLITUS
     Route: 048
  2. METFORMIN [Concomitant]
     Indication: TYPE 2 DIABETES MELLITUS
     Route: 048
  3. PRAVASTATIN SODIUM [Concomitant]
     Indication: HYPERCHOLESTEROLAEMIA
     Route: 048
  4. HYDROCHLOROTHIAZIDE AND LISINOPRIL [Concomitant]
     Indication: HYPERTENSION
     Route: 048
  5. PRAZOSIN HYDROCHLORIDE [Concomitant]
     Route: 048
  6. JANUVIA [Suspect]
     Indication: TYPE 2 DIABETES MELLITUS
     Route: 048
     Dates: start: 20100510
  7. ISRADIPINE [Concomitant]
     Indication: HYPERTENSION
     Route: 048
  8. RILMENIDINE PHOSPHATE [Concomitant]
     Route: 048
  9. ACEBUTOLOL [Concomitant]
     Route: 048
  10. ASPIRIN LYSINE [Concomitant]
     Route: 048
  11. LACTULOSE [Concomitant]
     Route: 048

REACTIONS (2)
  - CARDIAC ARREST [None]
  - PANCREATIC CARCINOMA [None]
